FAERS Safety Report 6920726-5 (Version None)
Quarter: 2010Q3

REPORT INFORMATION
  Report Type: 
  Country: None (occurrence: None)
  Receive Date: 20100812
  Receipt Date: 20100803
  Transmission Date: 20110219
  Serious: Yes (Hospitalization)
  Sender: FDA-Public Use
  Company Number: US-JNJFOC-20100800900

PATIENT
  Sex: Male
  Weight: 99.79 kg

DRUGS (9)
  1. REMICADE [Suspect]
     Indication: COLITIS ULCERATIVE
     Route: 042
  2. ENALAPRIL MALEATE [Concomitant]
  3. IRON FORTE [Concomitant]
  4. MULTI-VITAMINS [Concomitant]
  5. PREDNISONE [Concomitant]
     Indication: COLITIS ULCERATIVE
  6. LIALDA [Concomitant]
     Indication: COLITIS ULCERATIVE
  7. PRILOSEC [Concomitant]
     Indication: COLITIS ULCERATIVE
  8. WELCHOL [Concomitant]
     Indication: COLITIS ULCERATIVE
  9. ZOCOR [Concomitant]

REACTIONS (5)
  - COLITIS ULCERATIVE [None]
  - HAEMORRHAGE [None]
  - OVERDOSE [None]
  - PYREXIA [None]
  - WEIGHT DECREASED [None]
